FAERS Safety Report 9994971 (Version 1)
Quarter: 2014Q1

REPORT INFORMATION
  Report Type: Spontaneous
  Country: US (occurrence: US)
  Receive Date: 20140311
  Receipt Date: 20140311
  Transmission Date: 20141002
  Serious: Yes (Hospitalization)
  Sender: FDA-Public Use
  Company Number: US-ASTRAZENECA-2014SE15137

PATIENT
  Age: 74 Year
  Sex: Male

DRUGS (2)
  1. BRILINTA [Suspect]
     Indication: PRODUCT USED FOR UNKNOWN INDICATION
     Dosage: BID
     Route: 048
     Dates: start: 20140227, end: 20140227
  2. ASPIRIN [Concomitant]
     Dosage: 81 MG

REACTIONS (1)
  - Dyspnoea [Recovered/Resolved]
